FAERS Safety Report 25869687 (Version 1)
Quarter: 2025Q4

REPORT INFORMATION
  Report Type: Spontaneous
  Country: GB (occurrence: GB)
  Receive Date: 20251001
  Receipt Date: 20251001
  Transmission Date: 20260118
  Serious: Yes (Hospitalization)
  Sender: MYLAN
  Company Number: GB-MYLANLABS-2025M1083836

PATIENT
  Sex: Male

DRUGS (1)
  1. CLOZAPINE [Suspect]
     Active Substance: CLOZAPINE
     Indication: Product used for unknown indication
     Dosage: UNK, BID (100 MG IN THE MORNING AND 200 MG AT TEA TIME, HIGHEST DOSE)
     Dates: start: 20200204, end: 2020

REACTIONS (4)
  - Hospitalisation [Recovered/Resolved]
  - Constipation [Unknown]
  - Tachycardia [Unknown]
  - Salivary hypersecretion [Unknown]
